FAERS Safety Report 22063357 (Version 2)
Quarter: 2025Q3

REPORT INFORMATION
  Report Type: Spontaneous
  Country: EU (occurrence: EU)
  Receive Date: 20230306
  Receipt Date: 20250924
  Transmission Date: 20251021
  Serious: Yes (Other)
  Sender: ALKEM
  Company Number: None

PATIENT
  Age: 59 Year
  Sex: Male

DRUGS (13)
  1. DRONABINOL [Suspect]
     Active Substance: DRONABINOL
     Indication: Pain
     Dosage: 17.5 MILLIGRAM, QD
     Route: 048
     Dates: start: 20201106, end: 20220605
  2. DRONABINOL [Suspect]
     Active Substance: DRONABINOL
     Indication: Neuralgia
     Dosage: 5 MILLIGRAM, TID
     Route: 065
  3. DRONABINOL [Suspect]
     Active Substance: DRONABINOL
     Dosage: 5 MILLIGRAM, QID
     Route: 065
  4. DRONABINOL [Suspect]
     Active Substance: DRONABINOL
     Route: 065
  5. DRONABINOL [Suspect]
     Active Substance: DRONABINOL
     Route: 065
  6. DRONABINOL [Suspect]
     Active Substance: DRONABINOL
     Route: 065
  7. DRONABINOL [Suspect]
     Active Substance: DRONABINOL
     Route: 065
     Dates: end: 20220506
  8. DRONABINOL [Suspect]
     Active Substance: DRONABINOL
     Route: 065
  9. IMBRUVICA [Suspect]
     Active Substance: IBRUTINIB
     Indication: Chronic lymphocytic leukaemia
     Route: 048
  10. IMBRUVICA [Suspect]
     Active Substance: IBRUTINIB
     Route: 065
  11. IMBRUVICA [Suspect]
     Active Substance: IBRUTINIB
     Route: 065
  12. TRAMADOL HYDROCHLORIDE [Suspect]
     Active Substance: TRAMADOL HYDROCHLORIDE
     Indication: Pain
     Dosage: 1 DOSAGE FORM, QD (EVERY 1 DAY), (EXTENDED RELEASE 150 MILLIGRAM)
     Route: 048
  13. TRAMADOL HYDROCHLORIDE [Suspect]
     Active Substance: TRAMADOL HYDROCHLORIDE
     Route: 065

REACTIONS (4)
  - Dyspnoea [Not Recovered/Not Resolved]
  - Back pain [Recovering/Resolving]
  - Abdominal pain [Recovering/Resolving]
  - Nausea [Recovering/Resolving]

NARRATIVE: CASE EVENT DATE: 20220401
